FAERS Safety Report 26100315 (Version 1)
Quarter: 2025Q4

REPORT INFORMATION
  Report Type: Spontaneous
  Country: US (occurrence: US)
  Receive Date: 20251128
  Receipt Date: 20251128
  Transmission Date: 20260117
  Serious: Yes (Hospitalization, Other)
  Sender: SUNOVION
  Company Number: US-SUMITOMO PHARMA SWITZERLAND GMBH-2025SPA015942

PATIENT
  Age: 77 Year
  Sex: Female

DRUGS (6)
  1. GEMTESA [Suspect]
     Active Substance: VIBEGRON
     Indication: Incontinence
     Dosage: 75 MG, QD
     Route: 048
  2. ROSUVASTATIN [Concomitant]
     Active Substance: ROSUVASTATIN
     Indication: Blood cholesterol abnormal
     Dosage: 5 MG ONE HALF TABLET TAKEN  AT BEDTIME; TAKES VERY  MINIMAL AMOUNT
  3. OMEPRAZOLE [Concomitant]
     Active Substance: OMEPRAZOLE
     Indication: Gastrooesophageal reflux disease
     Dosage: 40 MG IN THE MORNING
  4. FAMOTIDINE [Concomitant]
     Active Substance: FAMOTIDINE
     Indication: Gastrooesophageal reflux disease
     Dosage: 40 MG  TAKEN AT NIGHT
  5. SUCRALFATE [Concomitant]
     Active Substance: SUCRALFATE
     Dosage: UNK ( DISCONTINUED WHEN THE  PATIENT GOT OUT OF THE HOSPITAL, AFTER THE SURGERY)
  6. SENNA [Concomitant]
     Active Substance: SENNOSIDES
     Dosage: UNK (DISCONTINUED WHEN THE PATIENT GOT OUT OF THE HOSPITAL, AFTER THE SURGERY)

REACTIONS (4)
  - Small intestinal obstruction [Unknown]
  - Knee arthroplasty [Unknown]
  - Body height decreased [Unknown]
  - Weight decreased [Unknown]

NARRATIVE: CASE EVENT DATE: 20250101
